FAERS Safety Report 6120130-6 (Version None)
Quarter: 2009Q1

REPORT INFORMATION
  Report Type: 
  Country: None (occurrence: None)
  Receive Date: 20090316
  Receipt Date: 20090310
  Transmission Date: 20090719
  Serious: Yes (Other)
  Sender: FDA-Public Use
  Company Number: ES-MERCK-0903ESP00020

PATIENT
  Age: 48 Year
  Sex: Male

DRUGS (14)
  1. ISENTRESS [Suspect]
     Indication: HIV INFECTION
     Route: 048
     Dates: start: 20081120
  2. ATENOLOL [Concomitant]
     Route: 048
  3. OMEPRAZOLE [Concomitant]
     Route: 048
  4. ENALAPRIL MALEATE [Concomitant]
     Route: 048
  5. ADIRO [Concomitant]
     Route: 048
  6. ASTUDAL [Concomitant]
     Route: 048
  7. ELORGAN [Concomitant]
     Route: 048
  8. LEDERFOLIN (LEUCOVORIN CALCIUM) [Concomitant]
     Route: 048
  9. NORVIR [Suspect]
     Indication: HIV INFECTION
     Route: 048
     Dates: start: 20081120
  10. PLAVIX [Concomitant]
     Route: 048
  11. PREVENCOR [Concomitant]
     Route: 048
  12. RENAGEL [Concomitant]
     Route: 048
  13. SEPTRIN [Concomitant]
     Route: 048
  14. TELZIR [Suspect]
     Indication: HIV INFECTION
     Route: 048
     Dates: start: 20081120

REACTIONS (1)
  - HYPERGLYCAEMIA [None]
